FAERS Safety Report 8405821-6 (Version None)
Quarter: 2012Q2

REPORT INFORMATION
  Report Type: 
  Country: None (occurrence: None)
  Receive Date: 20120604
  Receipt Date: 20120524
  Transmission Date: 20120825
  Serious: No
  Sender: FDA-Public Use
  Company Number: US-PFIZER INC-2012125978

PATIENT
  Sex: Female

DRUGS (2)
  1. PREMARIN [Suspect]
     Indication: VULVOVAGINAL DRYNESS
     Dosage: 0.625 MG, 2X/WEEK
     Route: 067
     Dates: start: 20120423
  2. LAMICTAL [Suspect]
     Dosage: 75 MG, 1X/DAY

REACTIONS (2)
  - MYALGIA [None]
  - FATIGUE [None]
